FAERS Safety Report 5123082-0 (Version None)
Quarter: 2006Q4

REPORT INFORMATION
  Report Type: 
  Country: None (occurrence: None)
  Receive Date: 20061005
  Receipt Date: 20060922
  Transmission Date: 20070319
  Serious: Yes (Other)
  Sender: FDA-Public Use
  Company Number: 2006114777

PATIENT
  Age: 18 Year
  Sex: Female
  Weight: 43.0917 kg

DRUGS (1)
  1. DRAMAMINE [Suspect]
     Indication: MOTION SICKNESS
     Dosage: ONE TABLET, AS NEEDED, ORAL
     Route: 048
     Dates: start: 19890101, end: 20051201

REACTIONS (8)
  - CONTUSION [None]
  - DYSURIA [None]
  - MOUTH ULCERATION [None]
  - PAIN [None]
  - POLLAKIURIA [None]
  - SCAR [None]
  - SKIN ULCER [None]
  - URTICARIA GENERALISED [None]
